FAERS Safety Report 9223151 (Version 1)
Quarter: 2013Q2

REPORT INFORMATION
  Report Type: Report from Study
  Country: GB (occurrence: GB)
  Receive Date: 20130410
  Receipt Date: 20130410
  Transmission Date: 20140414
  Serious: Yes (Other)
  Sender: FDA-Public Use
  Company Number: GB-JNJFOC-20130403157

PATIENT
  Age: 45 Year
  Sex: Female

DRUGS (3)
  1. REMICADE [Suspect]
     Indication: ANKYLOSING SPONDYLITIS
     Route: 042
     Dates: start: 20060413, end: 20110214
  2. SULPHASALAZINE [Concomitant]
     Indication: ANKYLOSING SPONDYLITIS
     Dosage: START DATE: ^PRE-INFLIXIMAB^
     Route: 065
  3. METHOTREXATE [Concomitant]
     Indication: ANKYLOSING SPONDYLITIS
     Dosage: START DATE: ^PRE-INFLIXIMAB^
     Route: 065

REACTIONS (1)
  - Non-Hodgkin^s lymphoma [Unknown]
